FAERS Safety Report 11625843 (Version 1)
Quarter: 2015Q4

REPORT INFORMATION
  Report Type: Spontaneous
  Country: US (occurrence: US)
  Receive Date: 20151013
  Receipt Date: 20151013
  Transmission Date: 20160304
  Serious: Yes (Hospitalization)
  Sender: FDA-Public Use
  Company Number: US-GUERBET LLC-1042892

PATIENT
  Age: 79 Year
  Sex: Female

DRUGS (2)
  1. OXILAN [Suspect]
     Active Substance: IOXILAN
     Indication: ANGIOGRAM
     Route: 042
     Dates: start: 20030129, end: 20030129
  2. DIPHENHYDRAMINE. [Concomitant]
     Active Substance: DIPHENHYDRAMINE
     Route: 042

REACTIONS (2)
  - Malaise [None]
  - Anaphylactic shock [Recovered/Resolved]

NARRATIVE: CASE EVENT DATE: 20030129
